FAERS Safety Report 5708003-1 (Version None)
Quarter: 2008Q2

REPORT INFORMATION
  Report Type: 
  Country: None (occurrence: None)
  Receive Date: 20080417
  Receipt Date: 20080409
  Transmission Date: 20081010
  Serious: Yes (Hospitalization)
  Sender: FDA-Public Use
  Company Number: JP-WYE-H03030008

PATIENT
  Age: 31 Year
  Sex: Female

DRUGS (1)
  1. OSTELUC [Suspect]
     Indication: TENOSYNOVITIS
     Route: 048
     Dates: start: 20080304, end: 20080306

REACTIONS (8)
  - CONJUNCTIVAL HYPERAEMIA [None]
  - DRUG ERUPTION [None]
  - GENERALISED ERYTHEMA [None]
  - LOCALISED OEDEMA [None]
  - MUCOSAL EROSION [None]
  - RASH GENERALISED [None]
  - SKIN EXFOLIATION [None]
  - SWELLING FACE [None]
